FAERS Safety Report 25738715 (Version 1)
Quarter: 2025Q3

REPORT INFORMATION
  Report Type: Spontaneous
  Country: GB (occurrence: None)
  Receive Date: 20250829
  Receipt Date: 20250829
  Transmission Date: 20251020
  Serious: Yes (Other)
  Sender: Alvotech
  Company Number: None

PATIENT
  Age: 26 Year
  Sex: Female

DRUGS (3)
  1. USTEKINUMAB [Suspect]
     Active Substance: USTEKINUMAB
     Indication: Product used for unknown indication
     Dosage: STRENGTH:  45MG/0.5ML SOLUTION FOR INJECTION PRE-FILLED SYRINGES
     Dates: start: 20250704, end: 20250815
  2. ALBUTEROL [Concomitant]
     Active Substance: ALBUTEROL
     Route: 055
  3. BECLOMETHASONE\FORMOTEROL [Concomitant]
     Active Substance: BECLOMETHASONE\FORMOTEROL
     Route: 055

REACTIONS (5)
  - Paraesthesia [Not Recovered/Not Resolved]
  - Gait disturbance [Not Recovered/Not Resolved]
  - Contusion [Not Recovered/Not Resolved]
  - Pallor [Not Recovered/Not Resolved]
  - Muscular weakness [Not Recovered/Not Resolved]
